FAERS Safety Report 24248905 (Version 1)
Quarter: 2024Q3

REPORT INFORMATION
  Report Type: Spontaneous
  Country: CN (occurrence: CN)
  Receive Date: 20240826
  Receipt Date: 20240826
  Transmission Date: 20241017
  Serious: Yes (Other)
  Sender: PFIZER
  Company Number: CN-PFIZER INC-PV202400109301

PATIENT
  Age: 6 Year
  Sex: Male
  Weight: 27 kg

DRUGS (5)
  1. CYTARABINE [Suspect]
     Active Substance: CYTARABINE
     Indication: Precursor T-lymphoblastic lymphoma/leukaemia
     Dosage: 2000 MG, 2X/DAY
     Route: 041
     Dates: start: 20240814, end: 20240815
  2. CYTARABINE [Suspect]
     Active Substance: CYTARABINE
     Indication: Coagulopathy
  3. CYTARABINE [Suspect]
     Active Substance: CYTARABINE
     Indication: Myelosuppression
  4. CYTARABINE [Suspect]
     Active Substance: CYTARABINE
     Indication: Neoplasm malignant
  5. CYTARABINE [Suspect]
     Active Substance: CYTARABINE
     Indication: Transaminases increased

REACTIONS (2)
  - Neurotoxicity [Recovering/Resolving]
  - Pain in extremity [Recovering/Resolving]

NARRATIVE: CASE EVENT DATE: 20240814
